FAERS Safety Report 9894845 (Version 2)
Quarter: 2014Q1

REPORT INFORMATION
  Report Type: Spontaneous
  Country: US (occurrence: US)
  Receive Date: 20140213
  Receipt Date: 20140310
  Transmission Date: 20141002
  Serious: No
  Sender: FDA-Public Use
  Company Number: US-009507513-1402USA005574

PATIENT
  Age: 62 Year
  Sex: Female
  Weight: 56.6 kg

DRUGS (2)
  1. EMEND [Suspect]
     Dosage: 125 MG, ONCE
     Route: 048
     Dates: start: 201310, end: 201310
  2. EMEND [Suspect]
     Dosage: 80 MG, QD
     Route: 048
     Dates: start: 201310

REACTIONS (3)
  - Overdose [Unknown]
  - Product quality issue [Unknown]
  - No adverse event [Unknown]
